FAERS Safety Report 19436789 (Version 1)
Quarter: 2021Q2

REPORT INFORMATION
  Report Type: Report from Study
  Country: CO (occurrence: CO)
  Receive Date: 20210618
  Receipt Date: 20210618
  Transmission Date: 20210717
  Serious: Yes (Other)
  Sender: FDA-Public Use
  Company Number: NVSC2021CO133013

PATIENT
  Sex: Male

DRUGS (2)
  1. REVOLADE [Suspect]
     Active Substance: ELTROMBOPAG OLAMINE
     Indication: APLASTIC ANAEMIA
     Dosage: UNK
     Route: 048
  2. PREDNISOLONE. [Suspect]
     Active Substance: PREDNISOLONE
     Indication: ANXIETY
     Dosage: 50 MG (3 DAYS TAKES 9 TABLETS DECREASES IT EVERY DAY)
     Route: 065

REACTIONS (10)
  - Poisoning [Unknown]
  - Anxiety [Unknown]
  - Feeling abnormal [Unknown]
  - Abdominal discomfort [Unknown]
  - Swelling face [Unknown]
  - Weight increased [Unknown]
  - Weight decreased [Unknown]
  - Malaise [Unknown]
  - Adverse reaction [Unknown]
  - Swelling [Unknown]
